FAERS Safety Report 7272915-0 (Version None)
Quarter: 2011Q1

REPORT INFORMATION
  Report Type: 
  Country: None (occurrence: None)
  Receive Date: 20110203
  Receipt Date: 20110124
  Transmission Date: 20110831
  Serious: Yes (Life-Threatening, Other)
  Sender: FDA-Public Use
  Company Number: JP-CELGENEUS-087-21880-10082443

PATIENT
  Sex: Male
  Weight: 46.1 kg

DRUGS (17)
  1. PARIET [Concomitant]
     Indication: PROPHYLAXIS
     Route: 048
     Dates: start: 20081101, end: 20100916
  2. MUCOSTA [Concomitant]
     Indication: PROPHYLAXIS
     Route: 048
     Dates: start: 20081101, end: 20100916
  3. LENADEX TABLET 4MG [Suspect]
     Route: 048
     Dates: start: 20101105, end: 20101108
  4. BIOFERMIN R [Concomitant]
     Route: 048
     Dates: start: 20100901, end: 20100930
  5. BLOSTAR M [Concomitant]
     Indication: PROPHYLAXIS
     Route: 048
     Dates: start: 20101029, end: 20101213
  6. REVLIMID [Suspect]
     Indication: MULTIPLE MYELOMA
     Route: 048
     Dates: start: 20100804, end: 20100824
  7. NEOSTELIN GREEN [Concomitant]
     Dosage: AS MUCH AS SUFFICES
     Route: 048
     Dates: start: 20101112, end: 20101213
  8. ZYLORIC [Concomitant]
     Route: 048
     Dates: start: 20081101, end: 20100916
  9. CELECOXIB [Concomitant]
     Indication: MULTIPLE MYELOMA
     Route: 048
     Dates: start: 20101210, end: 20101213
  10. LENADEX TABLET 4MG [Suspect]
     Route: 048
     Dates: start: 20100924, end: 20101015
  11. LENADEX TABLET 4MG [Suspect]
     Route: 048
     Dates: start: 20101119, end: 20101122
  12. POLYFUL [Concomitant]
     Dosage: 3 PACKS
     Route: 048
     Dates: start: 20100817, end: 20100902
  13. REVLIMID [Suspect]
     Route: 048
     Dates: start: 20100924, end: 20101014
  14. ALBUMIN TANNATE [Concomitant]
     Route: 048
     Dates: start: 20100913, end: 20100930
  15. REVLIMID [Suspect]
     Route: 048
     Dates: start: 20101105, end: 20101125
  16. LENADEX TABLET 4MG [Suspect]
     Indication: MULTIPLE MYELOMA
     Route: 048
     Dates: start: 20100804, end: 20100818
  17. BIOFERMIN R [Concomitant]
     Route: 048
     Dates: start: 20100423, end: 20100816

REACTIONS (8)
  - DYSPHONIA [None]
  - SEPSIS [None]
  - ALOPECIA [None]
  - THROMBOCYTOPENIA [None]
  - ANAEMIA [None]
  - NEUTROPHIL COUNT DECREASED [None]
  - DYSGEUSIA [None]
  - FEBRILE NEUTROPENIA [None]
